FAERS Safety Report 18931571 (Version 1)
Quarter: 2021Q1

REPORT INFORMATION
  Report Type: Spontaneous
  Country: DK (occurrence: DK)
  Receive Date: 20210223
  Receipt Date: 20210223
  Transmission Date: 20210420
  Serious: Yes (Life-Threatening)
  Sender: FDA-Public Use
  Company Number: DK-BEH-2021128454

PATIENT
  Age: 15 Year
  Sex: Female
  Weight: 63 kg

DRUGS (3)
  1. PRIVIGEN [Suspect]
     Active Substance: HUMAN IMMUNOGLOBULIN G
     Indication: KAWASAKI^S DISEASE
     Dosage: STRENGTH: 100 MG/ML
     Route: 042
     Dates: start: 20201222, end: 20201222
  2. VANCOMYCIN FRESENIUS [Concomitant]
     Indication: SEPSIS
     Dates: start: 20201222, end: 20201230
  3. PIPERACILLIN AND TAZOBACTAM [Concomitant]
     Active Substance: PIPERACILLIN SODIUM\TAZOBACTAM SODIUM
     Indication: SEPSIS
     Dates: start: 20201224, end: 20201230

REACTIONS (1)
  - Tubulointerstitial nephritis [Recovering/Resolving]

NARRATIVE: CASE EVENT DATE: 20201230
